FAERS Safety Report 7395245-5 (Version None)
Quarter: 2011Q2

REPORT INFORMATION
  Report Type: 
  Country: None (occurrence: None)
  Receive Date: 20110405
  Receipt Date: 20110331
  Transmission Date: 20111010
  Serious: Yes (Death)
  Sender: FDA-Public Use
  Company Number: JP-ASTRAZENECA-2011SE13308

PATIENT
  Age: 32953 Day
  Sex: Female
  Weight: 41 kg

DRUGS (7)
  1. OMEPRAL [Suspect]
     Route: 048
     Dates: start: 20101221, end: 20110302
  2. PLETAL [Suspect]
     Route: 048
     Dates: start: 20110101, end: 20110121
  3. ASPIRIN [Suspect]
     Route: 048
     Dates: start: 20101222, end: 20110311
  4. PLAVIX [Suspect]
     Route: 048
     Dates: start: 20110122, end: 20110301
  5. ALFAROL [Suspect]
     Route: 048
     Dates: start: 20101221, end: 20110302
  6. PLAVIX [Suspect]
     Route: 048
     Dates: start: 20101221, end: 20101230
  7. CRESTOR [Suspect]
     Indication: HYPERCHOLESTEROLAEMIA
     Route: 048
     Dates: start: 20101221, end: 20110302

REACTIONS (2)
  - INTERSTITIAL LUNG DISEASE [None]
  - PNEUMOTHORAX [None]
